FAERS Safety Report 5043750-9 (Version None)
Quarter: 2006Q2

REPORT INFORMATION
  Report Type: 
  Country: None (occurrence: None)
  Receive Date: 20060628
  Receipt Date: 20060619
  Transmission Date: 20061013
  Serious: Yes (Death, Other)
  Sender: FDA-Public Use
  Company Number: 163-20785-06010579

PATIENT
  Age: 77 Year
  Sex: Female

DRUGS (5)
  1. THALOMID [Suspect]
     Indication: MYELOFIBROSIS
     Dosage: SEE IMAGE
     Route: 048
     Dates: start: 20051109, end: 20060101
  2. THALOMID [Suspect]
     Indication: MYELOFIBROSIS
     Dosage: SEE IMAGE
     Route: 048
     Dates: end: 20060609
  3. THALOMID [Suspect]
     Indication: MYELOFIBROSIS
     Dosage: SEE IMAGE
     Route: 048
     Dates: start: 20060104
  4. SYNTHROID [Concomitant]
  5. PREDNISONE [Concomitant]

REACTIONS (8)
  - BLOOD THYROID STIMULATING HORMONE INCREASED [None]
  - GASTROOESOPHAGEAL REFLUX DISEASE [None]
  - MUSCLE SPASMS [None]
  - RENAL ATROPHY [None]
  - RENAL FAILURE [None]
  - SEPTIC SHOCK [None]
  - SMALL INTESTINAL PERFORATION [None]
  - SWELLING FACE [None]
